FAERS Safety Report 7263971-4 (Version None)
Quarter: 2011Q1

REPORT INFORMATION
  Report Type: 
  Country: None (occurrence: None)
  Receive Date: 20110130
  Receipt Date: 20101027
  Transmission Date: 20110831
  Serious: No
  Sender: FDA-Public Use
  Company Number: US-ABBOTT-10P-163-0682574-00

PATIENT
  Sex: Male

DRUGS (3)
  1. HUMIRA [Suspect]
     Indication: PSORIASIS
     Dates: start: 20101016, end: 20101016
  2. HUMIRA [Suspect]
     Indication: PSORIATIC ARTHROPATHY
     Dates: start: 20101008, end: 20101008
  3. HUMIRA [Suspect]
     Dates: start: 20101024

REACTIONS (5)
  - DIARRHOEA [None]
  - BACK PAIN [None]
  - SLUGGISHNESS [None]
  - NAUSEA [None]
  - ARTHRALGIA [None]
